FAERS Safety Report 4845152-4 (Version None)
Quarter: 2005Q4

REPORT INFORMATION
  Report Type: 
  Country: None (occurrence: None)
  Receive Date: 20051205
  Receipt Date: 20051110
  Transmission Date: 20060501
  Serious: Yes (Life-Threatening)
  Sender: FDA-Public Use
  Company Number: FR-ROCHE-424356

PATIENT
  Age: 81 Year
  Sex: Female

DRUGS (5)
  1. RIVOTRIL [Suspect]
     Indication: ANXIETY
     Dosage: REPORTED AS 1.5 MG TOTAL.
     Route: 048
     Dates: start: 20050818, end: 20050818
  2. LEXOMIL [Suspect]
     Indication: ANXIETY
     Route: 048
     Dates: start: 20050809, end: 20050813
  3. CITALOPRAM HYDROBROMIDE [Suspect]
     Indication: ANXIETY
     Dosage: REPORTED AS 10 MG TOTAL.
     Route: 048
     Dates: start: 20050818, end: 20050818
  4. DIGOXIN [Concomitant]
     Indication: ATRIAL FLUTTER
     Route: 048
  5. FUROSEMIDE [Concomitant]
     Route: 048

REACTIONS (6)
  - CARDIAC FAILURE [None]
  - COMA [None]
  - HYPERCAPNIA [None]
  - MULTI-ORGAN FAILURE [None]
  - NERVOUS SYSTEM DISORDER [None]
  - RENAL FAILURE ACUTE [None]
